FAERS Safety Report 23559985 (Version 1)
Quarter: 2024Q1

REPORT INFORMATION
  Report Type: Spontaneous
  Country: US (occurrence: US)
  Receive Date: 20240223
  Receipt Date: 20240223
  Transmission Date: 20240410
  Serious: No
  Sender: FDA-Public Use
  Company Number: US-BRISTOL-MYERS SQUIBB COMPANY-2024-028756

PATIENT
  Age: 57 Year
  Sex: Male

DRUGS (1)
  1. SPRYCEL [Suspect]
     Active Substance: DASATINIB
     Indication: Chronic myeloid leukaemia
     Dosage: FREQUENCY : 3 TIMES PER WEEK
     Route: 048
     Dates: start: 202110

REACTIONS (3)
  - Influenza [Unknown]
  - Off label use [Unknown]
  - Intentional dose omission [Unknown]
